FAERS Safety Report 21947048 (Version 1)
Quarter: 2023Q1

REPORT INFORMATION
  Report Type: Spontaneous
  Country: US (occurrence: US)
  Receive Date: 20230202
  Receipt Date: 20230202
  Transmission Date: 20230418
  Serious: No
  Sender: FDA-Public Use
  Company Number: US-GALDERMA-US2022013255

PATIENT

DRUGS (2)
  1. SOOLANTRA [Suspect]
     Active Substance: IVERMECTIN
     Indication: Malignant melanoma
     Dosage: 1 DOSAGE FORM
     Route: 061
  2. SOOLANTRA [Suspect]
     Active Substance: IVERMECTIN
     Indication: Demodicidosis

REACTIONS (1)
  - Product use in unapproved indication [Recovered/Resolved]
